FAERS Safety Report 5141159-0 (Version None)
Quarter: 2006Q4

REPORT INFORMATION
  Report Type: 
  Country: None (occurrence: None)
  Receive Date: 20061026
  Receipt Date: 20061012
  Transmission Date: 20070319
  Serious: Yes (Other)
  Sender: FDA-Public Use
  Company Number: 2006JP002210

PATIENT
  Sex: Female

DRUGS (16)
  1. PROTOPIC [Suspect]
     Indication: ERYTHEMA
     Dosage: 0.1%, TOPICAL
     Route: 061
     Dates: start: 20030728, end: 20060327
  2. ALLEGRA [Concomitant]
  3. SHINBU-TO GRANULE [Concomitant]
  4. LIDOMEX (PREDNISOLONE VALEROACETATE) [Concomitant]
  5. ANTEBATE (BETAMETHASONE BUTYRATE PROPIONATE) [Concomitant]
  6. BETAMETHASONE [Concomitant]
  7. LEVOFLOXACIN [Concomitant]
  8. DASEN (SERRAPEPTASE) [Concomitant]
  9. TERRA CORTRIL (OXYTETRACYCLINE HYDROCHLORIDE) [Concomitant]
  10. GOREI-SAN (HERBAL EXTRACT NOS) [Concomitant]
  11. HOCHUUEKKITOU (HERBAL EXTRACT NOS) [Concomitant]
  12. ROCALTROL [Concomitant]
  13. MUCOSTA (REBAMIPIDE) [Concomitant]
  14. FLUMETHOLON (FLUOROMETHOLONE) [Concomitant]
  15. LEVOFLOXACIN [Concomitant]
  16. SHAKUYAKUKANZOUTOU (HERBAL EXTRACT NOS) [Concomitant]

REACTIONS (1)
  - B-CELL LYMPHOMA [None]
